FAERS Safety Report 11411352 (Version 1)
Quarter: 2015Q3

REPORT INFORMATION
  Report Type: Other
  Country: CA (occurrence: CA)
  Receive Date: 20150824
  Receipt Date: 20150824
  Transmission Date: 20151125
  Serious: Yes (Other)
  Sender: FDA-Public Use
  Company Number: CA-APOTEX-2015AP011441

PATIENT
  Age: 62 Year
  Sex: Female

DRUGS (1)
  1. APO-RISEDRONATE [Suspect]
     Active Substance: RISEDRONATE SODIUM
     Indication: OSTEOPOROSIS
     Dosage: 150 MG, ONCE
     Route: 048

REACTIONS (2)
  - Influenza like illness [Recovered/Resolved]
  - Haematemesis [Recovered/Resolved]
